FAERS Safety Report 23540002 (Version 1)
Quarter: 2024Q1

REPORT INFORMATION
  Report Type: Spontaneous
  Country: RU (occurrence: None)
  Receive Date: 20240219
  Receipt Date: 20240219
  Transmission Date: 20240410
  Serious: Yes (Life-Threatening, Other)
  Sender: FDA-Public Use
  Company Number: 2024A040277

PATIENT
  Age: 2 Year
  Sex: Female

DRUGS (1)
  1. BUDESONIDE [Suspect]
     Active Substance: BUDESONIDE
     Route: 055

REACTIONS (7)
  - Respiratory failure [Unknown]
  - Respiratory tract infection viral [Unknown]
  - Bronchitis [Unknown]
  - Cough [Unknown]
  - Dyspnoea [Unknown]
  - Off label use [Unknown]
  - Adenoiditis [Unknown]
